FAERS Safety Report 8230904-3 (Version None)
Quarter: 2012Q1

REPORT INFORMATION
  Report Type: 
  Country: None (occurrence: None)
  Receive Date: 20120323
  Receipt Date: 20120320
  Transmission Date: 20120608
  Serious: Yes (Other)
  Sender: FDA-Public Use
  Company Number: US-PFIZER INC-2012072976

PATIENT
  Sex: Female
  Weight: 58.957 kg

DRUGS (8)
  1. PROCARDIA XL [Suspect]
     Indication: MYOCARDIAL INFARCTION
  2. DYAZIDE [Concomitant]
     Indication: CARDIAC DISORDER
     Dosage: UNK
  3. NEXIUM [Concomitant]
     Dosage: UNK
  4. PERSANTINE [Concomitant]
     Indication: CARDIAC DISORDER
     Dosage: UNK
  5. NITRO-DUR [Concomitant]
     Indication: CARDIAC DISORDER
     Dosage: UNK
  6. LANOXIN [Concomitant]
     Indication: CARDIAC DISORDER
     Dosage: UNK
  7. PROCARDIA XL [Suspect]
     Indication: CARDIAC DISORDER
     Dosage: 30 MG, 2X/DAY
     Dates: start: 19910101
  8. COZAAR [Concomitant]
     Indication: CARDIAC DISORDER
     Dosage: UNK

REACTIONS (1)
  - CARDIAC DISORDER [None]
